FAERS Safety Report 11132323 (Version 1)
Quarter: 2015Q2

REPORT INFORMATION
  Report Type: Spontaneous
  Country: US (occurrence: US)
  Receive Date: 20150522
  Receipt Date: 20150522
  Transmission Date: 20150821
  Serious: Yes (Hospitalization, Other)
  Sender: FDA-Public Use
  Company Number: US-ACTAVIS-2015-10066

PATIENT
  Age: 26 Year
  Sex: Male

DRUGS (1)
  1. MESALAZINE (UNKNOWN) [Suspect]
     Active Substance: MESALAMINE
     Indication: CROHN^S DISEASE
     Dosage: 1200 MG, BID
     Route: 065

REACTIONS (4)
  - Glomerulosclerosis [Unknown]
  - Chronic kidney disease [Unknown]
  - Kidney fibrosis [Unknown]
  - Tubulointerstitial nephritis [Unknown]

NARRATIVE: CASE EVENT DATE: 2012
